FAERS Safety Report 5842670-7 (Version None)
Quarter: 2008Q3

REPORT INFORMATION
  Report Type: 
  Country: None (occurrence: None)
  Receive Date: 20080808
  Receipt Date: 20080729
  Transmission Date: 20090109
  Serious: Yes (Death)
  Sender: FDA-Public Use
  Company Number: 2008AL008956

PATIENT
  Age: 77 Year
  Sex: Male
  Weight: 79.3795 kg

DRUGS (1)
  1. DIGOXIN [Suspect]
     Indication: CARDIAC DISORDER
     Dosage: 0.25MG, 1/2 TAB QD PO; SEVERAL YEARS
     Route: 048

REACTIONS (3)
  - CORONARY ARTERY DISEASE [None]
  - FATIGUE [None]
  - UNEVALUABLE EVENT [None]
